FAERS Safety Report 10573035 (Version 3)
Quarter: 2014Q4

REPORT INFORMATION
  Report Type: Spontaneous
  Country: US (occurrence: None)
  Receive Date: 20141106
  Receipt Date: 20141208
  Transmission Date: 20150529
  Serious: Yes (Life-Threatening, Hospitalization, Other)
  Sender: FDA-Public Use
  Company Number: ADR-2014-02047

PATIENT
  Age: 54 Year
  Sex: Female

DRUGS (2)
  1. HYDROMORPHONE [Suspect]
     Active Substance: HYDROMORPHONE
  2. COMPOUNDED BACLOFEN INTRATHECAL 2000MCG/ML [Suspect]
     Active Substance: BACLOFEN
     Indication: MUSCLE SPASTICITY

REACTIONS (13)
  - Mental status changes [None]
  - Pain [None]
  - Muscle spasticity [None]
  - Drug withdrawal syndrome [None]
  - Cardio-respiratory arrest [None]
  - Nausea [None]
  - Blood pressure increased [None]
  - Device dislocation [None]
  - Speech disorder [None]
  - Device malfunction [None]
  - Condition aggravated [None]
  - Influenza like illness [None]
  - Monoplegia [None]

NARRATIVE: CASE EVENT DATE: 20141028
